FAERS Safety Report 7323500-3 (Version None)
Quarter: 2011Q1

REPORT INFORMATION
  Report Type: 
  Country: None (occurrence: None)
  Receive Date: 20110301
  Receipt Date: 20110217
  Transmission Date: 20110831
  Serious: Yes (Other)
  Sender: FDA-Public Use
  Company Number: PHHY2009CA34947

PATIENT
  Sex: Female

DRUGS (3)
  1. LANREOTIDE [Suspect]
  2. SANDOSTATIN LAR [Suspect]
     Indication: ACROMEGALY
     Dosage: 10 MG EVERY 4 WEEKS
     Route: 030
     Dates: start: 20090721
  3. SANDOSTATIN LAR [Suspect]
     Dosage: 10 MG, QMO
     Route: 030
     Dates: end: 20101108

REACTIONS (14)
  - CONSTIPATION [None]
  - CHOLECYSTITIS [None]
  - HEADACHE [None]
  - BLOOD PRESSURE SYSTOLIC INCREASED [None]
  - MOVEMENT DISORDER [None]
  - FLATULENCE [None]
  - ABDOMINAL PAIN [None]
  - LOOSE TOOTH [None]
  - DECREASED APPETITE [None]
  - ABDOMINAL DISCOMFORT [None]
  - ABDOMINAL DISTENSION [None]
  - DIARRHOEA [None]
  - WAIST CIRCUMFERENCE INCREASED [None]
  - VOMITING [None]
